FAERS Safety Report 9859440 (Version 3)
Quarter: 2014Q2

REPORT INFORMATION
  Report Type: Spontaneous
  Country: FR (occurrence: FR)
  Receive Date: 20140131
  Receipt Date: 20140616
  Transmission Date: 20141212
  Serious: Yes (Other)
  Sender: FDA-Public Use
  Company Number: FR-UCBSA-110508

PATIENT
  Age: 33 Year
  Sex: Male

DRUGS (5)
  1. VIMPAT [Suspect]
     Indication: PARTIAL SEIZURES
     Dosage: 100 MG, 2X/DAY (BID)
     Route: 048
     Dates: start: 201306
  2. VIMPAT [Suspect]
     Dosage: 50 MG, 2X/DAY (BID)
     Route: 048
     Dates: start: 201308
  3. TEGRETOL [Concomitant]
     Indication: EPILEPSY
     Dosage: 600 MG, 2X/DAY (BID)
  4. URBANYL [Concomitant]
     Indication: EPILEPSY
     Dosage: 15 MG DAILY
  5. LEVOTHYROX [Concomitant]
     Indication: HORMONE LEVEL ABNORMAL

REACTIONS (5)
  - Sinus bradycardia [Recovered/Resolved]
  - Chest pain [Unknown]
  - Convulsion [Unknown]
  - Malaise [Recovered/Resolved]
  - Vomiting [Unknown]
